FAERS Safety Report 8817175 (Version 1)
Quarter: 2012Q4

REPORT INFORMATION
  Report Type: Spontaneous
  Country: US (occurrence: None)
  Receive Date: 20121003
  Receipt Date: 20121003
  Transmission Date: 20130627
  Serious: Yes (Hospitalization)
  Sender: FDA-Public Use
  Company Number: None

PATIENT
  Age: 5 Year
  Sex: Female
  Weight: 18.5 kg

DRUGS (3)
  1. ADALIMUMAB [Suspect]
     Indication: ULCERATIVE COLITIS
     Dosage: 40mg, q14days, sq
     Dates: start: 201204, end: 20120829
  2. LANSOPRAZOLE [Concomitant]
  3. MESALAMINE [Concomitant]

REACTIONS (2)
  - Pancreatitis [None]
  - Rash papular [None]
